FAERS Safety Report 6253172-0 (Version None)
Quarter: 2009Q3

REPORT INFORMATION
  Report Type: 
  Country: None (occurrence: None)
  Receive Date: 20090701
  Receipt Date: 20090623
  Transmission Date: 20100115
  Serious: Yes (Other)
  Sender: FDA-Public Use
  Company Number: CA-JNJFOC-20090608499

PATIENT
  Sex: Male
  Weight: 85.8 kg

DRUGS (6)
  1. REMICADE [Suspect]
     Dosage: (O,2, 6 WEEKS)
     Route: 042
  2. REMICADE [Suspect]
     Indication: PSORIASIS
     Dosage: (O,2, 6 WEEKS)
     Route: 042
  3. REMICADE [Suspect]
     Indication: RHEUMATOID ARTHRITIS
     Dosage: HAD 3 DOSES IN 2007
     Route: 042
  4. PRILOSEC [Concomitant]
  5. LONG ACTING INSULIN [Concomitant]
     Dosage: 30 UNITS BEFORE SLEEP
  6. NOVORAPID [Concomitant]
     Dosage: 15 UNITS

REACTIONS (8)
  - ARTHRALGIA [None]
  - BLOOD GLUCOSE DECREASED [None]
  - HYPERHIDROSIS [None]
  - HYPOTENSION [None]
  - INFUSION RELATED REACTION [None]
  - MALAISE [None]
  - PRURITUS [None]
  - VOMITING [None]
